FAERS Safety Report 25141182 (Version 1)
Quarter: 2025Q2

REPORT INFORMATION
  Report Type: Spontaneous
  Country: US (occurrence: None)
  Receive Date: 20250330
  Receipt Date: 20250330
  Transmission Date: 20250716
  Serious: Yes (Other)
  Sender: FDA-CTU
  Company Number: None

PATIENT
  Age: 63 Year
  Sex: Female

DRUGS (2)
  1. PREDNISOLONE ACETATE [Suspect]
     Active Substance: PREDNISOLONE ACETATE
     Indication: Cataract operation
     Dosage: 4 TIMES A DAY OPHTHALMIC ?
     Route: 047
     Dates: start: 20250310, end: 20250327
  2. FLUOROMETHOLONE [Suspect]
     Active Substance: FLUOROMETHOLONE

REACTIONS (2)
  - Intraocular pressure increased [None]
  - Headache [None]

NARRATIVE: CASE EVENT DATE: 20250313
